FAERS Safety Report 10513839 (Version 3)
Quarter: 2014Q4

REPORT INFORMATION
  Report Type: Spontaneous
  Country: BR (occurrence: BR)
  Receive Date: 20141013
  Receipt Date: 20141114
  Transmission Date: 20150528
  Serious: Yes (Hospitalization, Other)
  Sender: FDA-Public Use
  Company Number: BR-PFIZER INC-2014276955

PATIENT
  Age: 68 Year
  Sex: Female

DRUGS (7)
  1. PRISTIQ EXTENDED RELEASE [Suspect]
     Active Substance: DESVENLAFAXINE SUCCINATE
     Indication: ANXIETY
     Dosage: UNK
     Route: 048
     Dates: start: 201409
  2. PRISTIQ EXTENDED RELEASE [Suspect]
     Active Substance: DESVENLAFAXINE SUCCINATE
     Indication: CRYING
  3. DEPURA [Concomitant]
     Active Substance: CHOLECALCIFEROL
     Indication: VITAMIN SUPPLEMENTATION
     Dosage: UNK
     Dates: start: 201407
  4. PRISTIQ EXTENDED RELEASE [Suspect]
     Active Substance: DESVENLAFAXINE SUCCINATE
     Indication: HYPOAESTHESIA
     Dosage: 50 MG, 1X/DAY AFTER BREAKFAST
     Route: 048
     Dates: start: 2010, end: 201409
  5. PRISTIQ EXTENDED RELEASE [Suspect]
     Active Substance: DESVENLAFAXINE SUCCINATE
     Indication: PALPITATIONS
  6. SYNTHROID [Concomitant]
     Active Substance: LEVOTHYROXINE SODIUM
     Indication: THYROID DISORDER
     Dosage: 88 MG, 1X/DAY BEFORE BREAKFAST
     Dates: start: 1996
  7. OMEPRAZOLE. [Concomitant]
     Active Substance: OMEPRAZOLE
     Indication: DYSPEPSIA
     Dosage: 20 MG, 1X/DAY BEFORE BREAKFAST
     Dates: start: 2014

REACTIONS (11)
  - Irritable bowel syndrome [Not Recovered/Not Resolved]
  - Palpitations [Recovered/Resolved]
  - Constipation [Recovered/Resolved]
  - Palpitations [Unknown]
  - Hypoaesthesia [Unknown]
  - Crying [Unknown]
  - Anxiety [Unknown]
  - Diverticulitis [Not Recovered/Not Resolved]
  - Crying [Unknown]
  - Drug dependence [Not Recovered/Not Resolved]
  - Product use issue [Unknown]

NARRATIVE: CASE EVENT DATE: 2010
